FAERS Safety Report 8013789-X (Version None)
Quarter: 2011Q4

REPORT INFORMATION
  Report Type: 
  Country: None (occurrence: None)
  Receive Date: 20111229
  Receipt Date: 20111228
  Transmission Date: 20120403
  Serious: Yes (Life-Threatening, Hospitalization)
  Sender: FDA-Public Use
  Company Number: GB-B.I. PHARMACEUTICALS,INC./RIDGEFIELD-2011-UK-01086UK

PATIENT
  Sex: Female

DRUGS (9)
  1. VENTOLIN [Concomitant]
     Indication: ASTHMA
  2. VENTOLIN [Concomitant]
     Indication: CHRONIC OBSTRUCTIVE PULMONARY DISEASE
  3. MEDICATION FOR INDIGESTION AND CHOLESTEROL [Concomitant]
     Indication: DYSPEPSIA
  4. SPIRIVA RESPIMAT [Suspect]
     Indication: CHRONIC OBSTRUCTIVE PULMONARY DISEASE
     Dosage: 2 PUFFS OD
     Route: 055
  5. VERAPAMIL [Concomitant]
     Indication: HEART RATE IRREGULAR
  6. FLUTICASONE PROPIONATE/SALMETEROL [Concomitant]
     Indication: ASTHMA
  7. MEDICATION FOR INDIGESTION AND CHOLESTEROL [Concomitant]
     Indication: BLOOD CHOLESTEROL
  8. ADENOSINE [Suspect]
  9. FLUTICASONE PROPIONATE/SALMETEROL [Concomitant]
     Indication: CHRONIC OBSTRUCTIVE PULMONARY DISEASE

REACTIONS (2)
  - LOWER RESPIRATORY TRACT INFECTION [None]
  - CARDIO-RESPIRATORY ARREST [None]
